FAERS Safety Report 7274331-4 (Version None)
Quarter: 2011Q1

REPORT INFORMATION
  Report Type: 
  Country: None (occurrence: None)
  Receive Date: 20110204
  Receipt Date: 20110126
  Transmission Date: 20110831
  Serious: Yes (Other)
  Sender: FDA-Public Use
  Company Number: US-BAYER-2010-000333

PATIENT
  Sex: Female
  Weight: 73.469 kg

DRUGS (1)
  1. MIRENA [Suspect]
     Indication: CONTRACEPTION
     Dosage: 20 MCG/24HR, CONT
     Route: 015
     Dates: start: 20070910, end: 20101201

REACTIONS (5)
  - VAGINAL HAEMORRHAGE [None]
  - DEVICE DISLOCATION [None]
  - PELVIC PAIN [None]
  - ABDOMINAL PAIN [None]
  - BACK PAIN [None]
